FAERS Safety Report 8325608-2 (Version None)
Quarter: 2012Q2

REPORT INFORMATION
  Report Type: 
  Country: None (occurrence: None)
  Receive Date: 20120501
  Receipt Date: 20100430
  Transmission Date: 20120825
  Serious: No
  Sender: FDA-Public Use
  Company Number: US-TEVA-2010002728

PATIENT
  Sex: Female
  Weight: 74.456 kg

DRUGS (4)
  1. TRAZODONE HCL [Concomitant]
     Dosage: 50 MILLIGRAM;
     Route: 048
     Dates: start: 19900101
  2. NUVIGIL [Suspect]
     Route: 048
     Dates: end: 20091214
  3. CELEBREX [Concomitant]
     Indication: ARTHRALGIA
     Dosage: 200 MILLIGRAM;
     Route: 048
     Dates: start: 20050101
  4. PROZAC [Concomitant]
     Dosage: 20 MILLIGRAM;
     Route: 048
     Dates: start: 20080101

REACTIONS (3)
  - HEADACHE [None]
  - CHOKING SENSATION [None]
  - MALAISE [None]
